FAERS Safety Report 23722188 (Version 1)
Quarter: 2024Q2

REPORT INFORMATION
  Report Type: Spontaneous
  Country: US (occurrence: None)
  Receive Date: 20240408
  Receipt Date: 20240408
  Transmission Date: 20240716
  Serious: No
  Sender: FDA-Public Use
  Company Number: None

PATIENT
  Age: 32 Year
  Sex: 0
  Weight: 117.27 kg

DRUGS (1)
  1. INVEGA SUSTENNA [Suspect]
     Active Substance: PALIPERIDONE PALMITATE
     Indication: Schizoaffective disorder
     Dosage: OTHER FREQUENCY : Q4WEEKS;?
     Route: 030

REACTIONS (2)
  - Erectile dysfunction [None]
  - Hyperprolactinaemia [None]

NARRATIVE: CASE EVENT DATE: 20240130
